FAERS Safety Report 6235871-X (Version None)
Quarter: 2009Q2

REPORT INFORMATION
  Report Type: 
  Country: None (occurrence: None)
  Receive Date: 20090619
  Receipt Date: 20090608
  Transmission Date: 20091009
  Serious: Yes (Other)
  Sender: FDA-Public Use
  Company Number: US-WYE-H09046709

PATIENT
  Sex: Female
  Weight: 59.02 kg

DRUGS (7)
  1. EFFEXOR XR [Suspect]
     Indication: GENERALISED ANXIETY DISORDER
     Route: 048
     Dates: end: 20090519
  2. EFFEXOR XR [Suspect]
     Indication: MENOPAUSAL DEPRESSION
  3. CLIMARA [Concomitant]
     Indication: OOPHORECTOMY
     Dosage: UNSPECIFIED
     Route: 058
     Dates: start: 20040101
  4. CLIMARA [Concomitant]
     Indication: HORMONE REPLACEMENT THERAPY
  5. GLUCOSAMINE SULFATE [Concomitant]
     Indication: ARTHRITIS
     Dosage: UNSPECIFIED DOSE, PRN
  6. ATIVAN [Concomitant]
     Indication: GENERALISED ANXIETY DISORDER
  7. ZOMIG [Concomitant]
     Indication: MIGRAINE
     Dosage: 5 MG PRN

REACTIONS (10)
  - ABDOMINAL DISTENSION [None]
  - ABDOMINAL PAIN [None]
  - CARCINOID TUMOUR OF THE STOMACH [None]
  - CHEST PAIN [None]
  - CONSTIPATION [None]
  - DIARRHOEA [None]
  - DYSPEPSIA [None]
  - DYSPHAGIA [None]
  - WEIGHT DECREASED [None]
  - WEIGHT INCREASED [None]
